FAERS Safety Report 14044862 (Version 1)
Quarter: 2017Q4

REPORT INFORMATION
  Report Type: Spontaneous
  Country: US (occurrence: US)
  Receive Date: 20171005
  Receipt Date: 20171005
  Transmission Date: 20180321
  Serious: No
  Sender: FDA-Public Use
  Company Number: US-INDIVIOR LIMITED-INDV-100675-2017

PATIENT

DRUGS (1)
  1. SUBOXONE [Suspect]
     Active Substance: BUPRENORPHINE HYDROCHLORIDE\NALOXONE HYDROCHLORIDE
     Indication: DRUG USE DISORDER
     Dosage: CUTTING 2MG INTO FOUR PIECES AND TAKING 0.5 MG
     Route: 065

REACTIONS (2)
  - Product preparation error [Not Recovered/Not Resolved]
  - Drug screen negative [Not Recovered/Not Resolved]
